FAERS Safety Report 14386826 (Version 2)
Quarter: 2018Q4

REPORT INFORMATION
  Report Type: Spontaneous
  Country: US (occurrence: US)
  Receive Date: 20180115
  Receipt Date: 20181008
  Transmission Date: 20190204
  Serious: Yes (Other)
  Sender: FDA-Public Use
  Company Number: US-SA-2017SA163516

PATIENT
  Age: 68 Year
  Sex: Female
  Weight: 95.25 kg

DRUGS (13)
  1. LEXAPRO [Concomitant]
     Active Substance: ESCITALOPRAM OXALATE
     Dosage: UNK UNK, UNK
     Route: 065
  2. TAXOTERE [Suspect]
     Active Substance: DOCETAXEL
     Dosage: 200 MG,Q3W
     Route: 042
     Dates: start: 20060228, end: 20060228
  3. TOPROL XL [Concomitant]
     Active Substance: METOPROLOL SUCCINATE
     Dosage: UNK UNK, UNK
     Route: 065
  4. FISH OIL [Concomitant]
     Active Substance: FISH OIL
     Dosage: UNK UNK, UNK
     Route: 065
  5. TAXOTERE [Suspect]
     Active Substance: DOCETAXEL
     Indication: BREAST CANCER
     Dosage: 200 MG,Q3W
     Route: 042
     Dates: start: 20060116, end: 20060116
  6. CYTOXAN [Concomitant]
     Active Substance: CYCLOPHOSPHAMIDE
     Indication: CHEMOTHERAPY
     Dosage: UNK UNK, UNK
     Route: 065
  7. PREVACID [Concomitant]
     Active Substance: LANSOPRAZOLE
     Dosage: UNK UNK, UNK
     Route: 065
  8. ALTACE [Concomitant]
     Active Substance: RAMIPRIL
     Dosage: UNK UNK, UNK
     Route: 065
  9. LIPITOR [Concomitant]
     Active Substance: ATORVASTATIN CALCIUM
     Dosage: UNK UNK, UNK
     Route: 065
  10. ADALAT [Concomitant]
     Active Substance: NIFEDIPINE
     Dosage: UNK UNK, UNK
     Route: 065
  11. ZETIA [Concomitant]
     Active Substance: EZETIMIBE
     Dosage: UNK UNK, UNK
     Route: 065
  12. NEOSAR [Concomitant]
     Active Substance: CYCLOPHOSPHAMIDE
     Indication: CHEMOTHERAPY
     Dosage: UNK UNK, UNK
     Route: 065
  13. ACETYLSALICYLIC ACID [Concomitant]
     Active Substance: ASPIRIN
     Dosage: UNK UNK, UNK
     Route: 065

REACTIONS (2)
  - Alopecia [Recovering/Resolving]
  - Psychological trauma [Unknown]

NARRATIVE: CASE EVENT DATE: 2006
